FAERS Safety Report 15391624 (Version 1)
Quarter: 2018Q3

REPORT INFORMATION
  Report Type: Spontaneous
  Country: FR (occurrence: FR)
  Receive Date: 20180917
  Receipt Date: 20180917
  Transmission Date: 20181010
  Serious: Yes (Other)
  Sender: FDA-Public Use
  Company Number: FR-TEVA-2018-FR-955050

PATIENT
  Age: 77 Year
  Sex: Male
  Weight: 74 kg

DRUGS (1)
  1. IRINOTECAN 20 MG/ML CONCENTRATE FOR SOLUTION FOR INFUSION [Suspect]
     Active Substance: IRINOTECAN
     Indication: RECTAL ADENOCARCINOMA
     Route: 041
     Dates: start: 20130604, end: 20130604

REACTIONS (3)
  - Malaise [Recovered/Resolved]
  - Pulmonary oedema [Recovered/Resolved]
  - Syncope [Recovered/Resolved]

NARRATIVE: CASE EVENT DATE: 20130604
